FAERS Safety Report 19654593 (Version 3)
Quarter: 2021Q4

REPORT INFORMATION
  Report Type: Report from Study
  Country: US (occurrence: US)
  Receive Date: 20210804
  Receipt Date: 20211027
  Transmission Date: 20220303
  Serious: No
  Sender: FDA-Public Use
  Company Number: NVSC2021US171205

PATIENT
  Age: 50 Year
  Sex: Female

DRUGS (1)
  1. KESIMPTA [Suspect]
     Active Substance: OFATUMUMAB
     Indication: Multiple sclerosis
     Dosage: 0.4 ML, QW (DURING LOADING DOSES)
     Route: 058
     Dates: start: 20210721

REACTIONS (3)
  - Nausea [Unknown]
  - Chills [Unknown]
  - Headache [Unknown]

NARRATIVE: CASE EVENT DATE: 20210721
